FAERS Safety Report 5207649-7 (Version None)
Quarter: 2007Q1

REPORT INFORMATION
  Report Type: 
  Country: None (occurrence: None)
  Receive Date: 20070112
  Receipt Date: 20070103
  Transmission Date: 20070707
  Serious: Yes (Life-Threatening, Hospitalization, Other)
  Sender: FDA-Public Use
  Company Number: NO-PFIZER INC-2006142738

PATIENT
  Sex: Male
  Weight: 95 kg

DRUGS (15)
  1. LYRICA [Suspect]
     Indication: DIABETIC NEUROPATHY
     Route: 048
  2. LYRICA [Suspect]
     Indication: NEUROPATHY
  3. ADALAT [Concomitant]
     Route: 048
  4. SOBRIL [Concomitant]
     Route: 048
  5. NEXIUM [Concomitant]
  6. MOBIC [Concomitant]
     Route: 048
  7. SAROTEX [Concomitant]
     Route: 048
  8. ESUCOS [Concomitant]
     Route: 048
  9. ASASANTIN [Concomitant]
     Route: 048
  10. ZANIDIP [Concomitant]
  11. PANODIL [Concomitant]
  12. TEGRETOL [Concomitant]
     Route: 048
  13. MINITRAN [Concomitant]
     Route: 061
  14. VITAMIN B COMPLEX CAP [Concomitant]
     Route: 030
  15. TRIOBE [Concomitant]

REACTIONS (6)
  - ANXIETY [None]
  - CARDIAC FAILURE [None]
  - CHEST PAIN [None]
  - DYSPNOEA [None]
  - GENERAL PHYSICAL HEALTH DETERIORATION [None]
  - OEDEMA PERIPHERAL [None]
